FAERS Safety Report 7791903-9 (Version None)
Quarter: 2011Q3

REPORT INFORMATION
  Report Type: 
  Country: None (occurrence: None)
  Receive Date: 20110929
  Receipt Date: 20110922
  Transmission Date: 20111222
  Serious: Yes (Life-Threatening, Hospitalization)
  Sender: FDA-Public Use
  Company Number: 2011ST000320

PATIENT
  Age: 9 Year
  Sex: Female
  Weight: 39.5 kg

DRUGS (1)
  1. ONCASPAR [Suspect]
     Indication: ACUTE LYMPHOCYTIC LEUKAEMIA
     Dosage: 3125 IU;XI;IV
     Route: 042
     Dates: start: 20110920, end: 20110920

REACTIONS (7)
  - DYSPNOEA [None]
  - FLUSHING [None]
  - HYPOTONIA [None]
  - INFUSION RELATED REACTION [None]
  - SKIN DISCOLOURATION [None]
  - VOMITING [None]
  - CHEST DISCOMFORT [None]
